FAERS Safety Report 6761908-5 (Version None)
Quarter: 2010Q2

REPORT INFORMATION
  Report Type: 
  Country: None (occurrence: None)
  Receive Date: 20100609
  Receipt Date: 20100527
  Transmission Date: 20101027
  Serious: Yes (Hospitalization, Other)
  Sender: FDA-Public Use
  Company Number: PHHY2010FR34464

PATIENT
  Sex: Male

DRUGS (6)
  1. TEGRETOL [Suspect]
     Dosage: 200 MG, TID
     Route: 048
     Dates: end: 20090731
  2. TEGRETOL [Suspect]
     Dosage: 400 MG/DAY
  3. HYZAAR [Suspect]
     Dosage: 50/12.5 MG QD
     Route: 048
     Dates: end: 20090731
  4. NOZINAN [Concomitant]
     Dosage: 10 DROPS TID
  5. TRIHEXYPHENIDYL HCL [Concomitant]
     Dosage: 1 DF, BID
  6. NEULEPTIL [Concomitant]
     Dosage: 10 DROPS TID

REACTIONS (6)
  - BALANCE DISORDER [None]
  - CARDIOMEGALY [None]
  - DEHYDRATION [None]
  - DRUG LEVEL DECREASED [None]
  - HYPONATRAEMIA [None]
  - NYSTAGMUS [None]
